FAERS Safety Report 9849391 (Version 1)
Quarter: 2014Q1

REPORT INFORMATION
  Report Type: Spontaneous
  Country: US (occurrence: None)
  Receive Date: 20140122
  Receipt Date: 20140122
  Transmission Date: 20141002
  Serious: Yes (Death)
  Sender: FDA-Public Use
  Company Number: B0959028A

PATIENT
  Age: 59 Year
  Sex: Female

DRUGS (5)
  1. LAMOTRIGINE [Suspect]
     Route: 048
  2. OXYCODONE [Suspect]
     Route: 048
  3. ALPRAZOLAM [Suspect]
     Route: 048
  4. MUSCLE RELAXANT [Concomitant]
     Route: 048
  5. PARACETAMOL [Suspect]
     Route: 048

REACTIONS (2)
  - Drug abuse [None]
  - Exposure via ingestion [None]
